FAERS Safety Report 4616405-X (Version None)
Quarter: 2005Q1

REPORT INFORMATION
  Report Type: 
  Country: None (occurrence: None)
  Receive Date: 20050321
  Receipt Date: 20050223
  Transmission Date: 20050727
  Serious: Yes (Death)
  Sender: FDA-Public Use
  Company Number: 2005039323

PATIENT
  Age: 50 Year
  Sex: Female

DRUGS (2)
  1. PROVERA [Suspect]
     Indication: HORMONE REPLACEMENT THERAPY
     Dates: start: 19950101, end: 19970101
  2. CONJUGATED ESTROGENS [Suspect]
     Indication: HORMONE REPLACEMENT THERAPY
     Dates: start: 19950101, end: 19970101

REACTIONS (1)
  - BREAST CANCER FEMALE [None]
